FAERS Safety Report 7771706-1 (Version None)
Quarter: 2011Q3

REPORT INFORMATION
  Report Type: 
  Country: None (occurrence: None)
  Receive Date: 20110922
  Receipt Date: 20110218
  Transmission Date: 20111222
  Serious: No
  Sender: FDA-Public Use
  Company Number: US-ASTRAZENECA-2011SE09493

PATIENT
  Age: 553 Month
  Sex: Female
  Weight: 79.4 kg

DRUGS (5)
  1. NEURONTIN [Concomitant]
  2. SEROQUEL [Suspect]
     Route: 048
  3. SEROQUEL [Suspect]
     Indication: SLEEP DISORDER
     Route: 048
     Dates: start: 20010101
  4. LEXAPRO [Concomitant]
  5. KLONOPIN [Concomitant]

REACTIONS (1)
  - BRONCHITIS [None]
